FAERS Safety Report 7761840-4 (Version None)
Quarter: 2011Q3

REPORT INFORMATION
  Report Type: 
  Country: None (occurrence: None)
  Receive Date: 20110920
  Receipt Date: 20110908
  Transmission Date: 20111222
  Serious: Yes (Hospitalization, Other)
  Sender: FDA-Public Use
  Company Number: CA-US-EMD SERONO, INC.-7082034

PATIENT
  Sex: Female

DRUGS (4)
  1. RATIO LENOLTEC [Concomitant]
     Route: 048
  2. ATIVAN [Concomitant]
     Route: 048
  3. ADVIL LIQUI-GELS [Concomitant]
     Route: 048
  4. REBIF [Suspect]
     Indication: RELAPSING-REMITTING MULTIPLE SCLEROSIS
     Route: 058
     Dates: start: 20090908

REACTIONS (3)
  - CONGENITAL PULMONARY ARTERY ANOMALY [None]
  - BRONCHITIS [None]
  - SALIVARY GLAND NEOPLASM [None]
